FAERS Safety Report 8888833 (Version 2)
Quarter: 2012Q4

REPORT INFORMATION
  Report Type: 
  Country: US (occurrence: US)
  Receive Date: 20121106
  Receipt Date: 20121206
  Transmission Date: 20130627
  Serious: No
  Sender: FDA-Public Use
  Company Number: US-B.I. PHARMACEUTICALS,INC./RIDGEFIELD-2012-BP-27084BP

PATIENT
  Age: 68 None
  Sex: Male
  Weight: 94 kg

DRUGS (6)
  1. SPIRIVA [Suspect]
     Indication: CHRONIC OBSTRUCTIVE PULMONARY DISEASE
     Dosage: 18 mcg
     Route: 055
     Dates: start: 2005
  2. FUROSEMIDE [Concomitant]
     Indication: SWELLING
     Dosage: 40 mg
     Route: 048
     Dates: start: 2005
  3. LISINOPRIL [Concomitant]
     Indication: RENAL DISORDER
     Dosage: 2.5 mg
     Route: 048
     Dates: start: 201205
  4. ASPIRIN [Concomitant]
     Indication: CARDIAC DISORDER
     Dosage: 325 mg
     Route: 048
     Dates: start: 2005
  5. FISH OIL [Concomitant]
     Indication: CARDIAC DISORDER
     Dosage: 2000 mg
     Route: 048
     Dates: start: 2005
  6. ALBUTEROL [Concomitant]
     Indication: CHRONIC OBSTRUCTIVE PULMONARY DISEASE
     Route: 055
     Dates: start: 2005

REACTIONS (4)
  - Throat tightness [Not Recovered/Not Resolved]
  - Diabetes mellitus [Not Recovered/Not Resolved]
  - Product quality issue [Unknown]
  - Product quality issue [Unknown]
